FAERS Safety Report 5565905-7 (Version None)
Quarter: 2007Q4

REPORT INFORMATION
  Report Type: 
  Country: None (occurrence: None)
  Receive Date: 20071213
  Receipt Date: 20071203
  Transmission Date: 20080405
  Serious: No
  Sender: FDA-Public Use
  Company Number: 2007-164233-NL

PATIENT
  Age: 35 Year
  Sex: Female

DRUGS (38)
  1. MIRTAZAPINE [Suspect]
     Indication: DEPRESSED MOOD
     Dosage: 15 MG
     Dates: start: 20061219, end: 20070102
  2. MIRTAZAPINE [Suspect]
     Indication: SLEEP DISORDER
     Dosage: 15 MG
     Dates: start: 20061219, end: 20070102
  3. ALUMINIUM HYDROXIDE W/MAGNESIUM HYDROXIDE [Concomitant]
  4. AZATHIOPRINE [Concomitant]
  5. BROMOCRIPTINE MESYLATE [Concomitant]
  6. CALCIUM CARBONATE [Concomitant]
  7. CELECOXIB [Concomitant]
  8. FERROUS GLUCONATE [Concomitant]
  9. FUROSEMIDE [Concomitant]
  10. HEPARIN [Concomitant]
  11. METFORMIN HCL [Concomitant]
  12. MULTIVITAMINS WITH MINERALS [Concomitant]
  13. VERAPAMIL HYDROCHLORIDE [Concomitant]
  14. TOPIRAMATE [Concomitant]
  15. SALMETEROL XINAFOATE [Concomitant]
  16. RISEDRONATE SODIUM [Concomitant]
  17. PYRIDOXINE [Concomitant]
  18. PREDNISONE [Concomitant]
  19. POTASSIUM CHLORIDE [Concomitant]
  20. PANTOPRAZOLE SOIDUM [Concomitant]
  21. BREVICON [Concomitant]
  22. DOCUSATE [Concomitant]
  23. NYSTATIN [Concomitant]
  24. CLOTRIMAZOLE [Concomitant]
  25. VENLAFAXIINE HCL [Concomitant]
  26. ENOXAPARIN SODIUM [Concomitant]
  27. ALBUTEROL [Concomitant]
  28. DIMENHYDRINATE [Concomitant]
  29. ALMOTRIPTAN MALATE [Concomitant]
  30. CODEINE CONTIN [Concomitant]
  31. WARFARIN SODIUM [Concomitant]
  32. MONTELUKAST SODIUM [Concomitant]
  33. HYDROCHLOROTHIAZIDE [Concomitant]
  34. GABAPENTIN [Concomitant]
  35. FOLIC ACID [Concomitant]
  36. CODEINE [Concomitant]
  37. CALCIUM CARBONATE [Concomitant]
  38. VITAMIN D [Concomitant]

REACTIONS (1)
  - SOMNAMBULISM [None]
